FAERS Safety Report 21076211 (Version 1)
Quarter: 2022Q3

REPORT INFORMATION
  Report Type: Spontaneous
  Country: US (occurrence: None)
  Receive Date: 20220713
  Receipt Date: 20220713
  Transmission Date: 20221027
  Serious: Yes (Death, Life-Threatening, Hospitalization)
  Sender: FDA-Public Use
  Company Number: None

PATIENT
  Age: 61 Year
  Sex: Male
  Weight: 77.11 kg

DRUGS (14)
  1. CAPSAICIN [Suspect]
     Active Substance: CAPSAICIN
     Indication: Skin discolouration
     Route: 061
     Dates: start: 20191113, end: 20191113
  2. ALBUTEROL SULFATE [Suspect]
     Active Substance: ALBUTEROL SULFATE
  3. PREDNISONE [Suspect]
     Active Substance: PREDNISONE
  4. AMLODIPINE BESYLATE [Suspect]
     Active Substance: AMLODIPINE BESYLATE
  5. MUCINEX [Suspect]
     Active Substance: GUAIFENESIN
  6. TRELEGY ELLIPTA [Suspect]
     Active Substance: FLUTICASONE FUROATE\UMECLIDINIUM BROMIDE\VILANTEROL TRIFENATATE
  7. KEYTRUDA [Suspect]
     Active Substance: PEMBROLIZUMAB
  8. HYDROCODONE [Suspect]
     Active Substance: HYDROCODONE
  9. TRAMADOL HCL [Suspect]
     Active Substance: TRAMADOL HYDROCHLORIDE
  10. MEGESTROL ACETATE [Suspect]
     Active Substance: MEGESTROL ACETATE
  11. MIRTAZAPINE [Suspect]
     Active Substance: MIRTAZAPINE
  12. ALPRAZOLAM [Suspect]
     Active Substance: ALPRAZOLAM
  13. LORAZEPAM [Suspect]
     Active Substance: LORAZEPAM
  14. ONDANSETRON [Suspect]
     Active Substance: ONDANSETRON

REACTIONS (17)
  - Thrombosis [None]
  - Epistaxis [None]
  - Hallucination [None]
  - Weight decreased [None]
  - Tongue discolouration [None]
  - Asthenia [None]
  - Nausea [None]
  - Headache [None]
  - Agitation [None]
  - Muscle atrophy [None]
  - Ocular icterus [None]
  - Hepatic enzyme abnormal [None]
  - Dyspnoea [None]
  - Unresponsive to stimuli [None]
  - Renal disorder [None]
  - Feeding disorder [None]
  - Anaphylactic reaction [None]

NARRATIVE: CASE EVENT DATE: 20190807
